FAERS Safety Report 10640249 (Version 1)
Quarter: 2014Q4

REPORT INFORMATION
  Report Type: Spontaneous
  Country: US (occurrence: None)
  Receive Date: 20141208
  Receipt Date: 20141208
  Transmission Date: 20150529
  Serious: Yes (Other)
  Sender: FDA-Public Use
  Company Number: None

PATIENT
  Age: 72 Year
  Sex: Female
  Weight: 77.11 kg

DRUGS (4)
  1. BENGAY ULTRA STRENGTH [Suspect]
     Active Substance: METHYL SALICYLATE
     Indication: PAIN IN EXTREMITY
     Dosage: 2 APPLICATIONS - 16 HOURS APART
  2. BENGAY ULTRA STRENGTH [Suspect]
     Active Substance: METHYL SALICYLATE
     Indication: CHEST PAIN
     Dosage: 2 APPLICATIONS - 16 HOURS APART
  3. BENGAY ULTRA STRENGTH [Suspect]
     Active Substance: METHYL SALICYLATE
     Indication: BRONCHITIS
     Dosage: 2 APPLICATIONS - 16 HOURS APART
  4. BENGAY ULTRA STRENGTH [Suspect]
     Active Substance: METHYL SALICYLATE
     Indication: BACK PAIN
     Dosage: 2 APPLICATIONS - 16 HOURS APART

REACTIONS (6)
  - Application site vesicles [None]
  - Chemical injury [None]
  - Application site swelling [None]
  - Application site erythema [None]
  - Application site burn [None]
  - Activities of daily living impaired [None]

NARRATIVE: CASE EVENT DATE: 20141101
